FAERS Safety Report 7757522-5 (Version None)
Quarter: 2011Q3

REPORT INFORMATION
  Report Type: 
  Country: None (occurrence: None)
  Receive Date: 20110916
  Receipt Date: 20110909
  Transmission Date: 20111222
  Serious: Yes (Death, Hospitalization)
  Sender: FDA-Public Use
  Company Number: CN-ROCHE-787649

PATIENT
  Sex: Male
  Weight: 55.5 kg

DRUGS (13)
  1. XELODA [Suspect]
     Indication: GASTRIC CANCER RECURRENT
     Route: 048
     Dates: start: 20110423, end: 20110506
  2. PACLITAXEL [Suspect]
     Route: 041
     Dates: start: 20110702, end: 20110702
  3. OXYCODONE HCL [Concomitant]
     Indication: BACK PAIN
     Route: 048
     Dates: start: 20110623
  4. PAROXETINE HCL [Concomitant]
  5. DEXAMETHASONE ACETATE [Suspect]
     Indication: PREMEDICATION
     Route: 048
     Dates: start: 20110701
  6. AZINTAMIDE [Concomitant]
     Indication: DECREASED APPETITE
     Dates: start: 20110624
  7. AVASTIN [Suspect]
     Indication: GASTRIC CANCER RECURRENT
     Route: 041
     Dates: start: 20110624
  8. PACLITAXEL [Suspect]
     Indication: GASTRIC CANCER RECURRENT
     Route: 041
     Dates: start: 20110625, end: 20110625
  9. METHOCARBAMOL [Concomitant]
     Route: 048
     Dates: start: 20110423
  10. XELODA [Suspect]
     Route: 048
     Dates: start: 20110520, end: 20110602
  11. NEUPOGEN [Concomitant]
     Indication: WHITE BLOOD CELL COUNT DECREASED
     Dates: start: 20110529
  12. DOCETAXEL [Concomitant]
     Indication: GASTRIC CANCER RECURRENT
     Route: 042
     Dates: start: 20110423, end: 20110423
  13. DOCETAXEL [Concomitant]
     Route: 042
     Dates: start: 20110520, end: 20110520

REACTIONS (9)
  - LOWER GASTROINTESTINAL HAEMORRHAGE [None]
  - BONE MARROW FAILURE [None]
  - BACK PAIN [None]
  - SHOCK HAEMORRHAGIC [None]
  - MULTI-ORGAN FAILURE [None]
  - PHARYNGITIS [None]
  - GASTRIC CANCER [None]
  - TOOTHACHE [None]
  - ABNORMAL FAECES [None]
